FAERS Safety Report 19957519 (Version 1)
Quarter: 2021Q4

REPORT INFORMATION
  Report Type: Report from Study
  Country: US (occurrence: US)
  Receive Date: 20211014
  Receipt Date: 20211014
  Transmission Date: 20220304
  Serious: Yes (Other)
  Sender: FDA-Public Use
  Company Number: 2021A767165

PATIENT
  Sex: Female

DRUGS (2)
  1. TAGRISSO [Suspect]
     Active Substance: OSIMERTINIB
     Route: 048
  2. TAGRISSO [Suspect]
     Active Substance: OSIMERTINIB
     Dosage: TAKE 1 40MG TABLET BY MOUTH EVERY OTHER DAY ALTERNATING WITH 80 MG TABLET
     Route: 048

REACTIONS (1)
  - Myelosuppression [Recovered/Resolved]
